FAERS Safety Report 10425056 (Version 4)
Quarter: 2014Q4

REPORT INFORMATION
  Report Type: Spontaneous
  Country: US (occurrence: US)
  Receive Date: 20140902
  Receipt Date: 20141024
  Transmission Date: 20150528
  Serious: Yes (Hospitalization)
  Sender: FDA-Public Use
  Company Number: US-GLAXOSMITHKLINE-A1086546A

PATIENT
  Age: 81 Year
  Sex: Female

DRUGS (18)
  1. MILK OF MAGNESIA [Concomitant]
     Active Substance: MAGNESIUM HYDROXIDE
  2. VENTOLIN [Suspect]
     Active Substance: ALBUTEROL SULFATE
     Indication: BRONCHOSPASM
     Route: 055
     Dates: start: 2014
  3. ALKA SELTZER [Concomitant]
     Active Substance: ANHYDROUS CITRIC ACID\ASPIRIN\SODIUM BICARBONATE
  4. BREO ELLIPTA [Suspect]
     Active Substance: FLUTICASONE FUROATE\VILANTEROL TRIFENATATE
     Dates: start: 2014
  5. VITAMIN C [Concomitant]
     Active Substance: ASCORBIC ACID
  6. ADVAIR HFA [Suspect]
     Active Substance: FLUTICASONE PROPIONATE\SALMETEROL XINAFOATE
     Dosage: 500/50 MCG
     Route: 055
     Dates: end: 2014
  7. DARVOCET [Concomitant]
     Active Substance: ACETAMINOPHEN\PROPOXYPHENE HYDROCHLORIDE
  8. MULTIVITAMINS [Concomitant]
     Active Substance: VITAMINS
  9. BREO ELLIPTA [Suspect]
     Active Substance: FLUTICASONE FUROATE\VILANTEROL TRIFENATATE
     Indication: CHRONIC OBSTRUCTIVE PULMONARY DISEASE
     Route: 055
     Dates: start: 2014
  10. NEBULIZER [Concomitant]
     Active Substance: UNSPECIFIED INGREDIENT
  11. OXYGEN. [Concomitant]
     Active Substance: OXYGEN
  12. STOOL SOFTENER [Concomitant]
     Active Substance: DOCUSATE CALCIUM
  13. VITAMIN D3 [Concomitant]
     Active Substance: CHOLECALCIFEROL
  14. FISHOIL OMEGA-3 [Concomitant]
  15. CRANBERRY + VITAMIN C [Concomitant]
  16. LEVOTHYROXINE [Concomitant]
     Active Substance: LEVOTHYROXINE
  17. COMBIVENT RESPIMAT [Suspect]
     Active Substance: ALBUTEROL SULFATE\IPRATROPIUM BROMIDE
     Indication: PRODUCT USED FOR UNKNOWN INDICATION
     Dates: end: 201406
  18. ASPIRIN. [Concomitant]
     Active Substance: ASPIRIN

REACTIONS (26)
  - Limb injury [Unknown]
  - Eye disorder [Not Recovered/Not Resolved]
  - Dyspnoea [Unknown]
  - Visual impairment [Unknown]
  - Skin discolouration [Recovering/Resolving]
  - Myalgia [Unknown]
  - Candida infection [Unknown]
  - Eye infection [Unknown]
  - Drug ineffective [Unknown]
  - Nervousness [Unknown]
  - Swelling face [Recovering/Resolving]
  - Oxygen consumption decreased [Unknown]
  - Cyanosis [Unknown]
  - Paraesthesia [Unknown]
  - Contusion [Unknown]
  - Adverse event [Unknown]
  - Erythema [Unknown]
  - Laceration [Unknown]
  - Joint injury [Unknown]
  - Rash macular [Unknown]
  - Wheezing [Unknown]
  - Petechiae [Unknown]
  - Fall [Recovered/Resolved]
  - Arthritis [Unknown]
  - Hypoaesthesia [Recovering/Resolving]
  - Skin atrophy [Unknown]

NARRATIVE: CASE EVENT DATE: 2001
